FAERS Safety Report 4831787-1 (Version None)
Quarter: 2005Q4

REPORT INFORMATION
  Report Type: 
  Country: None (occurrence: None)
  Receive Date: 20051110
  Receipt Date: 20051028
  Transmission Date: 20060501
  Serious: Yes (Death)
  Sender: FDA-Public Use
  Company Number: THYM-10718

PATIENT
  Age: 4 Year
  Sex: Male
  Weight: 13.8 kg

DRUGS (3)
  1. THYMOGLOBULIN [Suspect]
     Indication: STEM CELL TRANSPLANT
     Dosage: 2.5 MG/KG QD IV
     Route: 042
     Dates: start: 20010116, end: 20010120
  2. FLUDARAINE [Concomitant]
  3. MELPHALAN [Concomitant]

REACTIONS (5)
  - EPSTEIN-BARR VIRUS INFECTION [None]
  - GRAFT VERSUS HOST DISEASE [None]
  - LIVER DISORDER [None]
  - LYMPHOPROLIFERATIVE DISORDER [None]
  - NON-HODGKIN'S LYMPHOMA [None]
